FAERS Safety Report 22187288 (Version 2)
Quarter: 2023Q2

REPORT INFORMATION
  Report Type: Spontaneous
  Country: DK (occurrence: DK)
  Receive Date: 20230407
  Receipt Date: 20230417
  Transmission Date: 20230722
  Serious: Yes (Other)
  Sender: FDA-Public Use
  Company Number: None

PATIENT
  Age: 51 Year
  Sex: Female

DRUGS (2)
  1. INFLIXIMAB [Suspect]
     Active Substance: INFLIXIMAB
     Indication: Colitis ulcerative
     Dosage: FREQUENCY: 6 WEEKS; DOSAGE: FIFTH INFUSION ADMINISTRATED ON 10FEB2022, STRENGTH: 100 MG
     Route: 042
     Dates: start: 20211005, end: 20220210
  2. INFLIXIMAB [Suspect]
     Active Substance: INFLIXIMAB
     Dosage: FREQUENCY: 6 WEEKS; DOSAGE: FIFTH INFUSION ADMINISTRATED ON 10FEB2022, STRENGTH: 100 MG
     Route: 042
     Dates: start: 20220210

REACTIONS (4)
  - Chest discomfort [Recovered/Resolved]
  - Hypersensitivity [Recovered/Resolved]
  - Erythema [Recovered/Resolved]
  - Dyspnoea [Recovered/Resolved]

NARRATIVE: CASE EVENT DATE: 20220210
